FAERS Safety Report 11844268 (Version 1)
Quarter: 2015Q4

REPORT INFORMATION
  Report Type: Spontaneous
  Country: GB (occurrence: GB)
  Receive Date: 20151217
  Receipt Date: 20151217
  Transmission Date: 20160305
  Serious: Yes (Other)
  Sender: FDA-Public Use
  Company Number: GB-ACTAVIS-2015-27904

PATIENT
  Age: 64 Year
  Sex: Male

DRUGS (8)
  1. DICLOFENAC (UNKNOWN) [Suspect]
     Active Substance: DICLOFENAC SODIUM
     Indication: ARTHROPATHY
     Dosage: 50 MG, TID
     Route: 065
  2. FINASTERIDE. [Concomitant]
     Active Substance: FINASTERIDE
     Indication: PROSTATOMEGALY
     Dosage: 5 MG, UNKNOWN
     Route: 065
  3. LOSEC [Concomitant]
     Active Substance: OMEPRAZOLE
     Indication: OESOPHAGITIS
     Dosage: 10 MG, UNKNOWN
     Route: 048
  4. MOVICOL [Concomitant]
     Active Substance: POLYETHYLENE GLYCOL 3350\POTASSIUM CHLORIDE\SODIUM BICARBONATE\SODIUM CHLORIDE
     Indication: PRODUCT USED FOR UNKNOWN INDICATION
     Dosage: UNK
     Route: 048
  5. SENOKOT                            /01226001/ [Concomitant]
     Active Substance: SENNOSIDE B
     Indication: PRODUCT USED FOR UNKNOWN INDICATION
     Dosage: UNK
     Route: 065
  6. DICLOFENAC (UNKNOWN) [Suspect]
     Active Substance: DICLOFENAC SODIUM
     Indication: BACK INJURY
  7. NEURONTIN [Suspect]
     Active Substance: GABAPENTIN
     Indication: BACK INJURY
     Dosage: 600 MG, TID
     Route: 065
  8. SERC [Concomitant]
     Active Substance: BETAHISTINE HYDROCHLORIDE
     Indication: MENIERE^S DISEASE
     Dosage: 8 MG, UNKNOWN
     Route: 048

REACTIONS (6)
  - Anxiety [Unknown]
  - Affective disorder [Unknown]
  - Mental impairment [Unknown]
  - Oropharyngeal pain [Not Recovered/Not Resolved]
  - Dysphonia [Unknown]
  - Nasopharyngitis [Unknown]
